FAERS Safety Report 11858638 (Version 1)
Quarter: 2015Q4

REPORT INFORMATION
  Report Type: Report from Study
  Country: US (occurrence: US)
  Receive Date: 20151222
  Receipt Date: 20151222
  Transmission Date: 20160305
  Serious: Yes (Hospitalization)
  Sender: FDA-Public Use
  Company Number: US-009507513-1512USA008148

PATIENT
  Age: 44 Year
  Sex: Male
  Weight: 93.2 kg

DRUGS (2)
  1. BEVACIZUMAB [Suspect]
     Active Substance: BEVACIZUMAB
     Indication: GLIOBLASTOMA
     Dosage: UNK UNK, QOW
     Dates: start: 20151124
  2. PEMBROLIZUMAB. [Suspect]
     Active Substance: PEMBROLIZUMAB
     Indication: GLIOBLASTOMA
     Dosage: UNK, Q3W
     Dates: start: 20151124

REACTIONS (2)
  - Headache [Unknown]
  - Hemiparesis [Unknown]

NARRATIVE: CASE EVENT DATE: 20151213
